FAERS Safety Report 21956417 (Version 7)
Quarter: 2023Q4

REPORT INFORMATION
  Report Type: Report from Study
  Country: CA (occurrence: CA)
  Receive Date: 20230206
  Receipt Date: 20231102
  Transmission Date: 20240109
  Serious: Yes (Other)
  Sender: FDA-Public Use
  Company Number: CA-TAKEDA-2017TUS022753

PATIENT
  Age: 40 Year
  Sex: Female

DRUGS (10)
  1. VEDOLIZUMAB [Suspect]
     Active Substance: VEDOLIZUMAB
     Indication: Colitis ulcerative
     Dosage: 300 MILLIGRAM
     Route: 042
     Dates: start: 20170517
  2. VEDOLIZUMAB [Suspect]
     Active Substance: VEDOLIZUMAB
     Dosage: 300 MILLIGRAM
     Route: 042
  3. VEDOLIZUMAB [Suspect]
     Active Substance: VEDOLIZUMAB
     Dosage: 300 MILLIGRAM, Q4WEEKS
     Route: 042
     Dates: start: 20230208
  4. VEDOLIZUMAB [Suspect]
     Active Substance: VEDOLIZUMAB
     Dosage: 300 MILLIGRAM, Q4WEEKS
     Route: 042
  5. VEDOLIZUMAB [Suspect]
     Active Substance: VEDOLIZUMAB
     Dosage: 300 MILLIGRAM, Q4WEEKS
     Route: 042
     Dates: end: 20231023
  6. WELLBUTRIN [Concomitant]
     Active Substance: BUPROPION HYDROCHLORIDE
     Indication: Anxiety
     Dosage: UNK
  7. Salofalk [Concomitant]
     Dosage: 2 GRAM, BID
  8. Salofalk [Concomitant]
     Dosage: 100 MILLIGRAM
  9. IRON [Concomitant]
     Active Substance: IRON
     Dosage: UNK
     Dates: start: 2015
  10. IRON [Concomitant]
     Active Substance: IRON
     Dosage: UNK
     Dates: start: 2017

REACTIONS (10)
  - Colitis ulcerative [Not Recovered/Not Resolved]
  - Rectal haemorrhage [Unknown]
  - Hemiplegia [Not Recovered/Not Resolved]
  - Drug ineffective [Unknown]
  - Frequent bowel movements [Recovering/Resolving]
  - Off label use [Unknown]
  - Malaise [Unknown]
  - Faeces soft [Unknown]
  - Dairy intolerance [Unknown]
  - Abdominal pain [Recovering/Resolving]

NARRATIVE: CASE EVENT DATE: 20230208
